FAERS Safety Report 20058710 (Version 1)
Quarter: 2021Q4

REPORT INFORMATION
  Report Type: Spontaneous
  Country: US (occurrence: US)
  Receive Date: 20211111
  Receipt Date: 20211111
  Transmission Date: 20220304
  Serious: No
  Sender: FDA-Public Use
  Company Number: US-CELGENE-USA-20211101132

PATIENT
  Sex: Female
  Weight: 74.456 kg

DRUGS (1)
  1. REVLIMID [Suspect]
     Active Substance: LENALIDOMIDE
     Indication: Plasma cell myeloma
     Dosage: 18.75 MILLIGRAM
     Route: 048
     Dates: start: 20210304

REACTIONS (1)
  - Hiccups [Unknown]

NARRATIVE: CASE EVENT DATE: 20210101
